FAERS Safety Report 9752742 (Version 1)
Quarter: 2013Q4

REPORT INFORMATION
  Report Type: Spontaneous
  Country: GB (occurrence: GB)
  Receive Date: 20131213
  Receipt Date: 20131213
  Transmission Date: 20140711
  Serious: Yes (Disabling)
  Sender: FDA-Public Use
  Company Number: GB-MERCK-1312GBR005067

PATIENT
  Age: 79 Year
  Sex: Female
  Weight: 72 kg

DRUGS (9)
  1. SITAGLIPTIN PHOSPHATE [Suspect]
     Dosage: UNK
     Route: 048
     Dates: start: 20131112
  2. ATORVASTATIN [Concomitant]
     Dosage: UNK
     Dates: start: 20130716
  3. CO-CODAMOL [Concomitant]
     Dosage: UNK
     Dates: start: 20130819, end: 20131124
  4. FERROUS FUMARATE [Concomitant]
     Dosage: UNK
     Dates: start: 20130819
  5. FERROUS SULFATE [Concomitant]
     Dosage: UNK
     Dates: start: 20130716, end: 20130910
  6. GLICLAZIDE [Concomitant]
     Dosage: UNK
     Dates: start: 20130819
  7. LANSOPRAZOLE [Concomitant]
     Dosage: UNK
     Dates: start: 20130819
  8. LISINOPRIL [Concomitant]
     Dosage: UNK
     Dates: start: 20130819
  9. METFORMIN [Concomitant]
     Dosage: UNK
     Dates: start: 20130819

REACTIONS (2)
  - Somnolence [Recovered/Resolved]
  - Headache [Recovered/Resolved]
